FAERS Safety Report 25988041 (Version 1)
Quarter: 2025Q4

REPORT INFORMATION
  Report Type: Spontaneous
  Country: EU (occurrence: EU)
  Receive Date: 20251103
  Receipt Date: 20251103
  Transmission Date: 20260117
  Serious: Yes (Death, Other)
  Sender: HIKMA
  Company Number: None

PATIENT
  Age: 60 Year
  Sex: Male
  Weight: 108 kg

DRUGS (4)
  1. CARBOPLATIN [Suspect]
     Active Substance: CARBOPLATIN
     Indication: Product used for unknown indication
     Dosage: 580 MILLIGRAM, 3W (5 MG AUC)
     Route: 042
     Dates: start: 20250731, end: 20250731
  2. OPDIVO [Suspect]
     Active Substance: NIVOLUMAB
     Indication: Lung adenocarcinoma stage IV
     Dosage: 360 MILLIGRAM, 3W
     Route: 042
     Dates: start: 20250731, end: 20250731
  3. PEMETREXED [Suspect]
     Active Substance: PEMETREXED
     Indication: Product used for unknown indication
     Dosage: 1000 MILLIGRAM, 3W (500 MG/MQ)
     Route: 042
     Dates: start: 20250731, end: 20250731
  4. YERVOY [Suspect]
     Active Substance: IPILIMUMAB
     Indication: Lung adenocarcinoma stage IV
     Dosage: 108 MILLIGRAM, 6W
     Route: 042
     Dates: start: 20250731, end: 20250731

REACTIONS (1)
  - Septic shock [Fatal]

NARRATIVE: CASE EVENT DATE: 20250805
